FAERS Safety Report 5236059-1 (Version None)
Quarter: 2007Q1

REPORT INFORMATION
  Report Type: 
  Country: None (occurrence: None)
  Receive Date: 20070212
  Receipt Date: 20070201
  Transmission Date: 20070707
  Serious: Yes (Life-Threatening)
  Sender: FDA-Public Use
  Company Number: FR-SANOFI-SYNTHELABO-A02200700368

PATIENT
  Sex: Male

DRUGS (6)
  1. TRAMADOL HCL [Concomitant]
     Indication: DRUG USE FOR UNKNOWN INDICATION
     Dosage: UNK
     Route: 048
     Dates: end: 20060320
  2. ASPEGIC 1000 [Concomitant]
     Indication: DRUG USE FOR UNKNOWN INDICATION
     Dosage: UNK
     Route: 048
     Dates: end: 20060320
  3. RIFATER [Suspect]
     Indication: BONE TUBERCULOSIS
     Dosage: RIFAMPYCINE 600 MG+ISONIAZIDE 250 MG+PYRAZINAMIDE 1500 MG
     Route: 048
     Dates: start: 20060202, end: 20060320
  4. MYAMBUTOL [Suspect]
     Indication: BONE TUBERCULOSIS
     Route: 048
     Dates: start: 20060202, end: 20060320
  5. ZOLPIDEM TARTRATE [Suspect]
     Indication: DRUG USE FOR UNKNOWN INDICATION
     Route: 048
     Dates: end: 20060320
  6. VASTEN [Suspect]
     Indication: DRUG USE FOR UNKNOWN INDICATION
     Route: 048
     Dates: end: 20060320

REACTIONS (2)
  - AGRANULOCYTOSIS [None]
  - VOMITING [None]
